FAERS Safety Report 4515473-3 (Version None)
Quarter: 2004Q4

REPORT INFORMATION
  Report Type: 
  Country: None (occurrence: None)
  Receive Date: 20041126
  Receipt Date: 20040401
  Transmission Date: 20050328
  Serious: Yes (Hospitalization, Other)
  Sender: FDA-Public Use
  Company Number: 701425

PATIENT
  Age: 47 Year
  Sex: Female
  Weight: 128.8216 kg

DRUGS (37)
  1. AMEVIVE [Suspect]
     Indication: PSORIASIS
     Dosage: 15 MG; QW; IM
     Route: 030
     Dates: start: 20031125, end: 20031209
  2. LISINOPRIL [Concomitant]
  3. EFFEXOR [Concomitant]
  4. SPIRONOLACTONE [Concomitant]
  5. LIPITOR [Concomitant]
  6. AVANDIA [Concomitant]
  7. HUMALOG MIX 75/25 [Concomitant]
  8. RELAFEN [Concomitant]
  9. CEFZIL [Concomitant]
  10. GENTAMYCIN OPHTHALMIC [Concomitant]
  11. ZOCOR [Concomitant]
  12. ACCUPRIL [Concomitant]
  13. CEFTIN [Concomitant]
  14. BIDEX [Concomitant]
  15. FIORICET [Concomitant]
  16. LIQUIBID-D [Concomitant]
  17. METHOTREXATE [Concomitant]
  18. VIOXX [Concomitant]
  19. TORADOL [Concomitant]
  20. MEDROL [Concomitant]
  21. DARVOCET-N 100 [Concomitant]
  22. DEXAMETHASONE PHOSPHATE [Concomitant]
  23. DEPO-MEDROL [Concomitant]
  24. LORTAB [Concomitant]
  25. CLINDAMYCIN HCL [Concomitant]
  26. GLUCOPHAGE [Concomitant]
  27. PREDNISONE [Concomitant]
  28. ZOLOFT [Concomitant]
  29. KEFLEX [Concomitant]
  30. CEFTIN [Concomitant]
  31. NIZORAL [Concomitant]
  32. VALTREX [Concomitant]
  33. LORTAB [Concomitant]
  34. AVELOX [Concomitant]
  35. ATUSS [Concomitant]
  36. MAXZIDE [Concomitant]
  37. SKELAXIN [Concomitant]

REACTIONS (56)
  - ACTIVATED PARTIAL THROMBOPLASTIN TIME PROLONGED [None]
  - ACUTE PRERENAL FAILURE [None]
  - ACUTE RESPIRATORY DISTRESS SYNDROME [None]
  - ALBUMIN GLOBULIN RATIO DECREASED [None]
  - ANAEMIA OF CHRONIC DISEASE [None]
  - ASTHENIA [None]
  - ATELECTASIS [None]
  - BACTERIA URINE IDENTIFIED [None]
  - BLOOD ALBUMIN DECREASED [None]
  - BLOOD ALKALINE PHOSPHATASE INCREASED [None]
  - BLOOD CHLORIDE DECREASED [None]
  - BLOOD CULTURE POSITIVE [None]
  - BLOOD ERYTHROPOIETIN INCREASED [None]
  - BLOOD GLUCOSE INCREASED [None]
  - BLOOD IRON DECREASED [None]
  - BLOOD SODIUM DECREASED [None]
  - CARDIOMEGALY [None]
  - CD4 LYMPHOCYTES INCREASED [None]
  - CD8 LYMPHOCYTES DECREASED [None]
  - CELLS IN URINE [None]
  - COMPLEMENT FACTOR C3 INCREASED [None]
  - DEHYDRATION [None]
  - FRACTION OF INSPIRED OXYGEN [None]
  - GASTROOESOPHAGEAL REFLUX DISEASE [None]
  - HYPOTENSION [None]
  - INFECTION IN AN IMMUNOCOMPROMISED HOST [None]
  - INTERSTITIAL LUNG DISEASE [None]
  - IRON BINDING CAPACITY TOTAL DECREASED [None]
  - JOINT SPRAIN [None]
  - LABORATORY TEST ABNORMAL [None]
  - LUNG CONSOLIDATION [None]
  - LYMPHOCYTE COUNT DECREASED [None]
  - LYMPHOCYTE PERCENTAGE DECREASED [None]
  - NEUTROPHIL COUNT ABNORMAL [None]
  - NEUTROPHIL PERCENTAGE INCREASED [None]
  - NEUTROPHIL TOXIC GRANULATION PRESENT [None]
  - PCO2 INCREASED [None]
  - PHOTOSENSITIVITY REACTION [None]
  - PLATELET COUNT INCREASED [None]
  - PNEUMONIA STREPTOCOCCAL [None]
  - PROTEIN TOTAL DECREASED [None]
  - PRURITUS [None]
  - PSORIASIS [None]
  - PULMONARY OEDEMA [None]
  - RENAL FAILURE [None]
  - RIB FRACTURE [None]
  - SCAR [None]
  - SERUM FERRITIN INCREASED [None]
  - SINUS TACHYCARDIA [None]
  - SPUTUM CULTURE POSITIVE [None]
  - SWELLING [None]
  - URINE ABNORMALITY [None]
  - URINE ANALYSIS ABNORMAL [None]
  - URTICARIA [None]
  - VISUAL DISTURBANCE [None]
  - VITAMIN B12 INCREASED [None]
